FAERS Safety Report 4325272-3 (Version None)
Quarter: 2004Q1

REPORT INFORMATION
  Report Type: 
  Country: None (occurrence: None)
  Receive Date: 20040324
  Receipt Date: 20040309
  Transmission Date: 20041129
  Serious: Yes (Life-Threatening)
  Sender: FDA-Public Use
  Company Number: JP_040302736

PATIENT
  Age: 86 Year
  Sex: Female
  Weight: 40 kg

DRUGS (4)
  1. VANCOMYCIN HCL [Suspect]
     Indication: PNEUMONIA STAPHYLOCOCCAL
     Dosage: 500 MG/1 DAY
     Dates: start: 20040212, end: 20040223
  2. CEFOTIAM HYDROCHLORIDE [Concomitant]
  3. CIPROXAN (CIPROFLOXACIN HYDROCHLORIDE) [Concomitant]
  4. BIOFERMIN [Concomitant]

REACTIONS (5)
  - AGRANULOCYTOSIS [None]
  - ALANINE AMINOTRANSFERASE INCREASED [None]
  - ASPARTATE AMINOTRANSFERASE INCREASED [None]
  - NEUTROPHIL PERCENTAGE DECREASED [None]
  - WHITE BLOOD CELL COUNT DECREASED [None]
